FAERS Safety Report 7244891-8 (Version None)
Quarter: 2011Q1

REPORT INFORMATION
  Report Type: 
  Country: None (occurrence: None)
  Receive Date: 20110126
  Receipt Date: 20110124
  Transmission Date: 20110831
  Serious: Yes (Other)
  Sender: FDA-Public Use
  Company Number: US-PFIZER INC-2010161796

PATIENT
  Sex: Female
  Weight: 90.703 kg

DRUGS (2)
  1. ADVIL [Suspect]
     Indication: HEADACHE
     Dosage: UNK
     Route: 048
     Dates: start: 20060101, end: 20101001
  2. ADVIL [Suspect]
     Indication: ANALGESIC THERAPY
     Dosage: 1-2 LIQUI-GELS WEEKLY
     Route: 048
     Dates: start: 20060101, end: 20101001

REACTIONS (7)
  - FOREIGN BODY [None]
  - RETCHING [None]
  - THROAT IRRITATION [None]
  - VOMITING [None]
  - PAIN [None]
  - PRODUCT QUALITY ISSUE [None]
  - ASPHYXIA [None]
